FAERS Safety Report 13444800 (Version 1)
Quarter: 2017Q2

REPORT INFORMATION
  Report Type: Spontaneous
  Country: DE (occurrence: DE)
  Receive Date: 20170414
  Receipt Date: 20170414
  Transmission Date: 20170830
  Serious: Yes (Death, Hospitalization)
  Sender: FDA-Public Use
  Company Number: DE-PFIZER INC-2017157872

PATIENT
  Age: 84 Year
  Sex: Female

DRUGS (1)
  1. LANTAREL [Suspect]
     Active Substance: METHOTREXATE SODIUM
     Indication: RHEUMATOID ARTHRITIS
     Dosage: 7.5 MG, WEEKLY (1XWEEK)
     Route: 048
     Dates: end: 20170228

REACTIONS (2)
  - Sepsis [Fatal]
  - Pancytopenia [Fatal]

NARRATIVE: CASE EVENT DATE: 20170228
